FAERS Safety Report 5194064-8 (Version None)
Quarter: 2006Q4

REPORT INFORMATION
  Report Type: 
  Country: None (occurrence: None)
  Receive Date: 20061222
  Receipt Date: 20061219
  Transmission Date: 20070319
  Serious: No
  Sender: FDA-Public Use
  Company Number: HQWYE666120DEC06

PATIENT
  Age: 94 Year
  Sex: Female
  Weight: 59.47 kg

DRUGS (10)
  1. ZOSYN [Suspect]
     Indication: STAPHYLOCOCCAL INFECTION
     Dosage: 3.37 MG 1X PER 6 HR, INTRAVENOUS
     Route: 042
     Dates: start: 20061125, end: 20061212
  2. ZOSYN [Suspect]
     Indication: URINARY TRACT INFECTION BACTERIAL
     Dosage: 3.37 MG 1X PER 6 HR, INTRAVENOUS
     Route: 042
     Dates: start: 20061125, end: 20061212
  3. TYGACIL [Suspect]
     Indication: STAPHYLOCOCCAL INFECTION
     Dosage: INTRAVENOUS
     Route: 042
     Dates: start: 20061207
  4. TYGACIL [Suspect]
     Indication: URINARY TRACT INFECTION BACTERIAL
     Dosage: INTRAVENOUS
     Route: 042
     Dates: start: 20061207
  5. ZYVOX [Suspect]
     Indication: STAPHYLOCOCCAL INFECTION
     Dates: start: 20061125, end: 20061201
  6. ZYVOX [Suspect]
     Indication: URINARY TRACT INFECTION BACTERIAL
     Dates: start: 20061125, end: 20061201
  7. MEROPENEM (MEROPENEM) [Concomitant]
  8. CEFTAZIDIME [Concomitant]
  9. LOVENOX [Concomitant]
  10. VANCOMYCIN  HYDROCHLORIDE, USP (STERILE) (VANCOMYCIN HYDROCHLORIDE) [Concomitant]

REACTIONS (11)
  - ALANINE AMINOTRANSFERASE INCREASED [None]
  - ASPARTATE AMINOTRANSFERASE INCREASED [None]
  - BONE MARROW FAILURE [None]
  - HAEMOGLOBIN DECREASED [None]
  - IATROGENIC INJURY [None]
  - INJURY [None]
  - MYOCARDIAL INFARCTION [None]
  - OPERATIVE HAEMORRHAGE [None]
  - PLATELET COUNT DECREASED [None]
  - RETICULOCYTE COUNT DECREASED [None]
  - SEPTIC SHOCK [None]
